FAERS Safety Report 18560964 (Version 3)
Quarter: 2021Q1

REPORT INFORMATION
  Report Type: Report from Study
  Country: CO (occurrence: CO)
  Receive Date: 20201130
  Receipt Date: 20210226
  Transmission Date: 20210419
  Serious: Yes (Life-Threatening, Other)
  Sender: FDA-Public Use
  Company Number: PHHY2016CO118302

PATIENT
  Age: 56 Year
  Sex: Male
  Weight: 48 kg

DRUGS (3)
  1. SANDOSTATIN LAR DEPOT [Suspect]
     Active Substance: OCTREOTIDE ACETATE
     Dosage: 30 MG, QMO
     Route: 030
     Dates: start: 20210126
  2. SANDOSTATIN LAR DEPOT [Suspect]
     Active Substance: OCTREOTIDE ACETATE
     Indication: GASTROENTEROPANCREATIC NEUROENDOCRINE TUMOUR DISEASE
     Dosage: 30 MG, QMO EVERY 28 DAYS (FORMULATION: AMPOULE)
     Route: 030
     Dates: start: 20140912
  3. SANDOSTATIN LAR DEPOT [Suspect]
     Active Substance: OCTREOTIDE ACETATE
     Dosage: 30 MG, QMO
     Route: 030
     Dates: start: 2015, end: 202012

REACTIONS (16)
  - Neuroendocrine tumour [Unknown]
  - Product availability issue [Unknown]
  - Abdominal pain upper [Recovered/Resolved]
  - Near death experience [Unknown]
  - Suicidal ideation [Unknown]
  - Abdominal pain [Unknown]
  - Eating disorder [Unknown]
  - Malaise [Unknown]
  - Product dose omission issue [Unknown]
  - Pain [Unknown]
  - Insomnia [Unknown]
  - Fear [Unknown]
  - Abdominal discomfort [Unknown]
  - Weight decreased [Unknown]
  - Disease recurrence [Unknown]
  - Anxiety [Unknown]

NARRATIVE: CASE EVENT DATE: 20170614
